FAERS Safety Report 12445213 (Version 1)
Quarter: 2016Q2

REPORT INFORMATION
  Report Type: Spontaneous
  Country: FR (occurrence: FR)
  Receive Date: 20160607
  Receipt Date: 20160607
  Transmission Date: 20160815
  Serious: Yes (Hospitalization)
  Sender: FDA-Public Use
  Company Number: FR-ASTRAZENECA-2016SE58899

PATIENT
  Age: 1063 Month
  Sex: Female

DRUGS (10)
  1. TEMERIT [Concomitant]
     Active Substance: NEBIVOLOL
  2. HYPERIUM [Concomitant]
     Active Substance: RILMENIDINE PHOSPHATE
  3. UVEDOSE [Concomitant]
     Active Substance: CHOLECALCIFEROL
  4. LEVOTHYROX [Concomitant]
     Active Substance: LEVOTHYROXINE
  5. TEGRETOL [Concomitant]
     Active Substance: CARBAMAZEPINE
  6. SERETIDE [Concomitant]
     Active Substance: FLUTICASONE PROPIONATE\SALMETEROL XINAFOATE
  7. VENTOLINE [Concomitant]
     Active Substance: ALBUTEROL
  8. CETIRIZINE [Concomitant]
     Active Substance: CETIRIZINE HYDROCHLORIDE
  9. INEXIUM [Suspect]
     Active Substance: ESOMEPRAZOLE
     Indication: GASTROOESOPHAGEAL REFLUX DISEASE
     Route: 048
     Dates: end: 20160202
  10. LASILIX [Concomitant]
     Active Substance: FUROSEMIDE

REACTIONS (5)
  - Gastric polyps [Unknown]
  - Gastritis [Unknown]
  - Hiatus hernia [Unknown]
  - Portal fibrosis [Unknown]
  - Hepatitis [Not Recovered/Not Resolved]

NARRATIVE: CASE EVENT DATE: 201601
